FAERS Safety Report 4445761-0 (Version None)
Quarter: 2004Q3

REPORT INFORMATION
  Report Type: 
  Country: None (occurrence: None)
  Receive Date: 20040910
  Receipt Date: 20040902
  Transmission Date: 20050211
  Serious: Yes (Other)
  Sender: FDA-Public Use
  Company Number: PHFR2004GB03401

PATIENT

DRUGS (1)
  1. AREDIA [Suspect]
     Indication: OSTEOPOROSIS
     Dosage: 30 MG/DAY
     Dates: start: 20040601

REACTIONS (2)
  - BLINDNESS [None]
  - BLINDNESS UNILATERAL [None]
